FAERS Safety Report 8419525-7 (Version None)
Quarter: 2012Q2

REPORT INFORMATION
  Report Type: 
  Country: None (occurrence: None)
  Receive Date: 20120607
  Receipt Date: 20111031
  Transmission Date: 20120825
  Serious: Yes (Other)
  Sender: FDA-Public Use
  Company Number: US-BRISTOL-MYERS SQUIBB COMPANY-16205981

PATIENT
  Age: 46 Year
  Sex: Male
  Weight: 95 kg

DRUGS (11)
  1. GEMFIBROZIL [Concomitant]
  2. LEXAPRO [Concomitant]
  3. CRESTOR [Concomitant]
  4. SUSTIVA [Suspect]
     Indication: HIV INFECTION
     Route: 048
     Dates: start: 20030101, end: 20111023
  5. COMBIVIR [Concomitant]
  6. METOPROLOL [Concomitant]
  7. LOVAZA [Concomitant]
  8. SEROQUEL [Concomitant]
  9. AMBIEN [Concomitant]
  10. DEPAKOTE [Concomitant]
  11. CLONAZEPAM [Concomitant]

REACTIONS (5)
  - DRY MOUTH [None]
  - ABDOMINAL PAIN LOWER [None]
  - ABDOMINAL DISTENSION [None]
  - DEPRESSION [None]
  - WEIGHT INCREASED [None]
